FAERS Safety Report 5308976-5 (Version None)
Quarter: 2007Q2

REPORT INFORMATION
  Report Type: 
  Country: None (occurrence: None)
  Receive Date: 20070426
  Receipt Date: 20070415
  Transmission Date: 20071010
  Serious: Yes (Other)
  Sender: FDA-Public Use
  Company Number: US-PFIZER INC-2007030215

PATIENT
  Sex: Male
  Weight: 118.18 kg

DRUGS (16)
  1. CHANTIX [Suspect]
     Indication: SMOKING CESSATION THERAPY
     Route: 048
     Dates: start: 20070405
  2. NICOTINE [Suspect]
  3. MS CONTIN [Concomitant]
  4. DIAZEPAM [Concomitant]
  5. ROZEREM [Concomitant]
  6. PROTONIX [Concomitant]
  7. SEROQUEL [Concomitant]
  8. LISINOPRIL [Concomitant]
  9. OMACOR [Concomitant]
  10. TIZANIDINE HCL [Concomitant]
  11. ACTOS [Concomitant]
  12. METFORMIN HCL [Concomitant]
  13. EFFEXOR [Concomitant]
  14. NIASPAN [Concomitant]
  15. OXYCODONE HCL [Concomitant]
  16. LANTUS [Concomitant]

REACTIONS (7)
  - BLOOD GLUCOSE INCREASED [None]
  - CONSTIPATION [None]
  - DRUG WITHDRAWAL SYNDROME [None]
  - HEADACHE [None]
  - NAUSEA [None]
  - NERVOUSNESS [None]
  - TREMOR [None]
